FAERS Safety Report 8069435-2 (Version None)
Quarter: 2012Q1

REPORT INFORMATION
  Report Type: 
  Country: None (occurrence: None)
  Receive Date: 20120119
  Receipt Date: 20120106
  Transmission Date: 20120608
  Serious: Yes (Other)
  Sender: FDA-Public Use
  Company Number: JPI-P-019064

PATIENT
  Age: 34 Year
  Sex: Male
  Weight: 83.9154 kg

DRUGS (7)
  1. LOVASTATIN [Concomitant]
  2. QUETIAPINE FUMARATE [Concomitant]
  3. XYREM [Suspect]
     Indication: MYOCLONUS
     Dosage: SEE IMAGE
     Route: 048
     Dates: end: 20120105
  4. XYREM [Suspect]
     Indication: MYOCLONUS
     Dosage: SEE IMAGE
     Route: 048
     Dates: start: 20070212
  5. XYREM [Suspect]
     Indication: MYOCLONUS
     Dosage: SEE IMAGE
     Route: 048
     Dates: start: 20080602
  6. GABAPENTIN [Concomitant]
  7. DULOXETIME HYDROCHLORIDE [Concomitant]

REACTIONS (10)
  - FALL [None]
  - JOINT INJURY [None]
  - FRACTURE [None]
  - LIGAMENT RUPTURE [None]
  - MIDDLE INSOMNIA [None]
  - DRUG DEPENDENCE [None]
  - COUGH [None]
  - MUSCLE RUPTURE [None]
  - LOWER RESPIRATORY TRACT INFECTION [None]
  - TREMOR [None]
